FAERS Safety Report 25073641 (Version 1)
Quarter: 2025Q1

REPORT INFORMATION
  Report Type: Spontaneous
  Country: US (occurrence: US)
  Receive Date: 20250313
  Receipt Date: 20250313
  Transmission Date: 20250408
  Serious: No
  Sender: TARO
  Company Number: US-TARO PHARMACEUTICALS USA INC.-2024TAR00557

PATIENT

DRUGS (3)
  1. TRETINOIN [Suspect]
     Active Substance: TRETINOIN
     Indication: Skin hyperpigmentation
     Route: 061
     Dates: start: 20240227
  2. TRETINOIN [Suspect]
     Active Substance: TRETINOIN
     Route: 061
     Dates: start: 20240311
  3. GLYCOLIC ACID\HYDROQUINONE [Suspect]
     Active Substance: GLYCOLIC ACID\HYDROQUINONE
     Indication: Skin hyperpigmentation
     Route: 061
     Dates: start: 20240227

REACTIONS (4)
  - Eyelid oedema [Unknown]
  - Rash [Unknown]
  - Erythema [Unknown]
  - Product use in unapproved indication [Unknown]

NARRATIVE: CASE EVENT DATE: 20240304
